FAERS Safety Report 5389909-2 (Version None)
Quarter: 2007Q3

REPORT INFORMATION
  Report Type: 
  Country: None (occurrence: None)
  Receive Date: 20070718
  Receipt Date: 20070710
  Transmission Date: 20080115
  Serious: Yes (Other)
  Sender: FDA-Public Use
  Company Number: US-JNJFOC-20070702322

PATIENT
  Sex: Female
  Weight: 45.36 kg

DRUGS (2)
  1. HALDOL [Suspect]
     Indication: DRUG USE FOR UNKNOWN INDICATION
  2. PHENOBARBITAL TAB [Concomitant]
     Indication: CONVULSION

REACTIONS (4)
  - CONVULSION [None]
  - HALLUCINATION [None]
  - MEMORY IMPAIRMENT [None]
  - SPEECH DISORDER [None]
